FAERS Safety Report 7478476-5 (Version None)
Quarter: 2011Q2

REPORT INFORMATION
  Report Type: 
  Country: None (occurrence: None)
  Receive Date: 20110513
  Receipt Date: 20100618
  Transmission Date: 20111010
  Serious: Yes (Other)
  Sender: FDA-Public Use
  Company Number: US-PFIZER INC-2010077291

PATIENT
  Age: 45 Year
  Sex: Female
  Weight: 53 kg

DRUGS (4)
  1. ATENOLOL [Concomitant]
     Dosage: UNK
  2. CELEBREX [Suspect]
     Indication: RHEUMATOID ARTHRITIS
     Dosage: 100 MG, DAILY
     Route: 048
     Dates: start: 20100615
  3. CELEBREX [Suspect]
     Indication: ARTHRALGIA
  4. ADDERALL 10 [Concomitant]
     Dosage: UNK
     Dates: end: 20100618

REACTIONS (1)
  - ARTHRALGIA [None]
